FAERS Safety Report 8026788-9 (Version None)
Quarter: 2012Q1

REPORT INFORMATION
  Report Type: 
  Country: None (occurrence: None)
  Receive Date: 20120106
  Receipt Date: 20111223
  Transmission Date: 20120608
  Serious: Yes (Hospitalization)
  Sender: FDA-Public Use
  Company Number: US-BAYER-2011-069837

PATIENT
  Age: 31 Year
  Sex: Female
  Weight: 63.492 kg

DRUGS (15)
  1. ACETAMINOPHEN [Concomitant]
     Indication: HEADACHE
     Dosage: 1-2 PRN
  2. PRILOSEC [Concomitant]
     Indication: REFLUX GASTRITIS
  3. RANITIDINE [Concomitant]
     Dosage: 300 MG, UNK
     Dates: start: 20090518, end: 20090714
  4. PHENERGAN [Concomitant]
  5. IMITREX [Concomitant]
     Dosage: UNK
     Dates: start: 20000101, end: 20100101
  6. PRILOSEC [Concomitant]
     Indication: ULCER
     Dosage: UNK
     Dates: start: 20090101, end: 20100101
  7. HYOMAX-SL [Concomitant]
     Dosage: 0.125 MG, UNK
     Dates: start: 20090518
  8. LORAZEPAM [Concomitant]
     Dosage: 1 MG, UNK
     Dates: start: 20090518, end: 20090713
  9. ANTIBIOTICS [Concomitant]
  10. BUTALBITAL ACETAMINOPHEN AND CAFFEINE [Concomitant]
     Dosage: UNK
     Dates: start: 20090518
  11. LEVSIN [Concomitant]
  12. CITALOPRAM HYDROBROMIDE [Concomitant]
     Dosage: 40 MG, UNK
     Dates: start: 20090518, end: 20090714
  13. SUMATRIPTAN [Concomitant]
     Dosage: 50 MG, UNK
     Dates: start: 20090630
  14. FIORICET [Concomitant]
  15. YAZ [Suspect]
     Indication: CONTRACEPTION
     Dosage: UNK
     Dates: start: 20070501, end: 20090101

REACTIONS (3)
  - PAIN [None]
  - GALLBLADDER NON-FUNCTIONING [None]
  - CHOLECYSTITIS ACUTE [None]
